FAERS Safety Report 9739058 (Version 1)
Quarter: 2013Q4

REPORT INFORMATION
  Report Type: Spontaneous
  Country: US (occurrence: US)
  Receive Date: 20131209
  Receipt Date: 20131209
  Transmission Date: 20140711
  Serious: Yes (Other)
  Sender: FDA-Public Use
  Company Number: US-BAYER-2013-148685

PATIENT
  Age: 21 Year
  Sex: Female
  Weight: 68.84 kg

DRUGS (3)
  1. YAZ [Suspect]
  2. YASMIN [Suspect]
  3. CLEXANE [Concomitant]
     Dosage: 40 MG, UNK

REACTIONS (1)
  - Deep vein thrombosis [None]
